FAERS Safety Report 9701275 (Version 2)
Quarter: 2013Q4

REPORT INFORMATION
  Report Type: Spontaneous
  Country: US (occurrence: US)
  Receive Date: 20131121
  Receipt Date: 20131121
  Transmission Date: 20140711
  Serious: No
  Sender: FDA-Public Use
  Company Number: US-GILEAD-2008-0016212

PATIENT
  Age: 72 Year
  Sex: Female

DRUGS (11)
  1. LETAIRIS [Suspect]
     Indication: PULMONARY ARTERIAL HYPERTENSION
     Route: 048
     Dates: start: 20080325, end: 20080411
  2. FUROSEMIDE [Concomitant]
  3. DIOVAN [Concomitant]
  4. ALBUTEROL [Concomitant]
  5. PLAQUENIL [Concomitant]
  6. ASPIRIN [Concomitant]
  7. FOLIC ACID [Concomitant]
  8. FISH OIL [Concomitant]
  9. MULTIVITAMINS [Concomitant]
  10. VITAMIN C [Concomitant]
  11. CALCIUM [Concomitant]

REACTIONS (5)
  - Oropharyngeal pain [None]
  - Oedema peripheral [None]
  - Headache [None]
  - Constipation [None]
  - Flushing [None]
